FAERS Safety Report 7854476-8 (Version None)
Quarter: 2011Q4

REPORT INFORMATION
  Report Type: 
  Country: None (occurrence: None)
  Receive Date: 20111026
  Receipt Date: 20111020
  Transmission Date: 20120403
  Serious: Yes (Hospitalization, Other)
  Sender: FDA-Public Use
  Company Number: JP-PFIZER INC-2011208781

PATIENT
  Age: 58 Year
  Sex: Male
  Weight: 63.2 kg

DRUGS (11)
  1. AMOBAN [Concomitant]
     Indication: INSOMNIA
     Dosage: 7.5 MG, 1X/DAY
     Route: 048
     Dates: start: 20100513, end: 20101228
  2. ZOLOFT [Suspect]
     Dosage: 50 MG, 1X/DAY
     Route: 048
     Dates: start: 20100721, end: 20100810
  3. PAXIL [Suspect]
     Dosage: 20 MG, 1X/DAY
     Route: 048
     Dates: start: 20100721, end: 20100727
  4. ZOLOFT [Suspect]
     Indication: MAJOR DEPRESSION
     Dosage: 25 MG, 1X/DAY
     Route: 048
     Dates: start: 20100714, end: 20100720
  5. PAXIL [Suspect]
     Dosage: 30 MG, 1X/DAY
     Route: 048
     Dates: start: 20100609, end: 20100622
  6. PAXIL [Suspect]
     Dosage: 30 MG, 1X/DAY
     Route: 048
     Dates: start: 20100714, end: 20100720
  7. PAXIL [Suspect]
     Dosage: 10 MG, 1X/DAY
     Route: 048
     Dates: start: 20100728, end: 20100803
  8. PAXIL [Suspect]
     Dosage: 20 MG, 1X/DAY
     Route: 048
     Dates: start: 20100526, end: 20100608
  9. PAXIL [Suspect]
     Indication: MAJOR DEPRESSION
     Dosage: 10 MG, 1X/DAY
     Route: 048
     Dates: start: 20100513, end: 20100525
  10. ZOLOFT [Suspect]
     Dosage: 75 MG, 1X/DAY
     Route: 048
     Dates: start: 20100811
  11. PAXIL [Suspect]
     Dosage: 40 MG, 1X/DAY
     Route: 048
     Dates: start: 20100623, end: 20100713

REACTIONS (2)
  - OBSESSIVE THOUGHTS [None]
  - PRIAPISM [None]
